FAERS Safety Report 21263245 (Version 1)
Quarter: 2022Q3

REPORT INFORMATION
  Report Type: Spontaneous
  Country: IT (occurrence: IT)
  Receive Date: 20220829
  Receipt Date: 20220829
  Transmission Date: 20221026
  Serious: Yes (Other)
  Sender: FDA-Public Use
  Company Number: IT-JNJFOC-20220850802

PATIENT
  Age: 18 Year
  Sex: Male

DRUGS (1)
  1. RISPERDAL [Suspect]
     Active Substance: RISPERIDONE
     Indication: Product used for unknown indication
     Dosage: 1 MG/ML ORAL DROPS, SOLUTION, IN THERAPY WITH 5 DROPS IN THE EVENING, BUT TOOK 30 DROPS
     Route: 048

REACTIONS (2)
  - Drug abuse [Unknown]
  - Intentional product misuse [Unknown]
